FAERS Safety Report 9117500 (Version 1)
Quarter: 2013Q1

REPORT INFORMATION
  Report Type: Spontaneous
  Country: US (occurrence: US)
  Receive Date: 20130128
  Receipt Date: 20130128
  Transmission Date: 20140127
  Serious: No
  Sender: FDA-Public Use
  Company Number: US-009507513-1301USA011139

PATIENT
  Age: 25 Year
  Sex: Female

DRUGS (1)
  1. NUVARING [Suspect]
     Indication: CONTRACEPTION
     Dosage: EVERY THREE WEEKS IN,1 WEEK
     Route: 067
     Dates: start: 2005

REACTIONS (3)
  - Medical device discomfort [Unknown]
  - Device difficult to use [Unknown]
  - Device expulsion [Unknown]
